FAERS Safety Report 8051916-9 (Version None)
Quarter: 2012Q1

REPORT INFORMATION
  Report Type: 
  Country: None (occurrence: None)
  Receive Date: 20120118
  Receipt Date: 20120105
  Transmission Date: 20120608
  Serious: Yes (Other)
  Sender: FDA-Public Use
  Company Number: CA-JNJFOC-20120105611

PATIENT
  Sex: Female
  Weight: 114.3 kg

DRUGS (2)
  1. REMICADE [Suspect]
     Indication: CROHN'S DISEASE
     Route: 042
     Dates: start: 20120105
  2. REMICADE [Suspect]
     Route: 042

REACTIONS (1)
  - TOOTH EXTRACTION [None]
